FAERS Safety Report 7797222-9 (Version None)
Quarter: 2011Q4

REPORT INFORMATION
  Report Type: 
  Country: None (occurrence: None)
  Receive Date: 20111005
  Receipt Date: 20110926
  Transmission Date: 20120403
  Serious: Yes (Hospitalization)
  Sender: FDA-Public Use
  Company Number: PHHY2011AU33357

PATIENT
  Sex: Male

DRUGS (1)
  1. CLOZAPINE [Suspect]
     Indication: SCHIZOPHRENIA
     Dates: start: 20040930

REACTIONS (4)
  - LOWER RESPIRATORY TRACT INFECTION [None]
  - DYSPNOEA [None]
  - DEPRESSED LEVEL OF CONSCIOUSNESS [None]
  - EMPHYSEMA [None]
